FAERS Safety Report 9292326 (Version 2)
Quarter: 2013Q2

REPORT INFORMATION
  Report Type: Spontaneous
  Country: ES (occurrence: None)
  Receive Date: 20130513
  Receipt Date: 20130516
  Transmission Date: 20140414
  Serious: Yes (Other)
  Sender: FDA-Public Use
  Company Number: FK201301535

PATIENT
  Age: 30 Year
  Sex: Male

DRUGS (3)
  1. CYTARABINE [Suspect]
     Indication: ACUTE LYMPHOCYTIC LEUKAEMIA
  2. CICLOSPORIN [Suspect]
     Dosage: 1.5 MG/KG TWICE PER DAY?
  3. METHOTREXATE (METHOTREXATE) [Concomitant]

REACTIONS (3)
  - Palmar-plantar erythrodysaesthesia syndrome [None]
  - Graft versus host disease [None]
  - Condition aggravated [None]
